FAERS Safety Report 16101107 (Version 1)
Quarter: 2019Q1

REPORT INFORMATION
  Report Type: Spontaneous
  Country: FR (occurrence: FR)
  Receive Date: 20190321
  Receipt Date: 20190321
  Transmission Date: 20190418
  Serious: Yes (Hospitalization)
  Sender: FDA-Public Use
  Company Number: FR-ALLERGAN-1912097US

PATIENT
  Sex: Male

DRUGS (1)
  1. OZURDEX [Suspect]
     Active Substance: DEXAMETHASONE
     Indication: EYE OEDEMA
     Dosage: 0.7 MG, SINGLE
     Route: 031
     Dates: start: 2017

REACTIONS (5)
  - Oedema [Not Recovered/Not Resolved]
  - Product availability issue [Unknown]
  - Product dose omission [Unknown]
  - Off label use [Unknown]
  - Arterial repair [Unknown]
